FAERS Safety Report 4787721-6 (Version None)
Quarter: 2005Q3

REPORT INFORMATION
  Report Type: 
  Country: None (occurrence: None)
  Receive Date: 20050914
  Receipt Date: 20050623
  Transmission Date: 20060218
  Serious: Yes (Other)
  Sender: FDA-Public Use
  Company Number: 408888

PATIENT
  Age: 85 Year
  Sex: Female

DRUGS (1)
  1. BONIVA [Suspect]

REACTIONS (1)
  - ASTHENIA [None]
